FAERS Safety Report 7811800-X (Version None)
Quarter: 2011Q4

REPORT INFORMATION
  Report Type: 
  Country: None (occurrence: None)
  Receive Date: 20111013
  Receipt Date: 20110830
  Transmission Date: 20120403
  Serious: Yes (Hospitalization)
  Sender: FDA-Public Use
  Company Number: PHEH2011US06182

PATIENT
  Sex: Female

DRUGS (10)
  1. PROCRIT [Concomitant]
     Dosage: UNK
     Dates: start: 20070625
  2. MINOCYCLINE HCL [Concomitant]
  3. RED BLOOD CELLS, CONCENTRATED [Concomitant]
  4. EXJADE [Suspect]
     Indication: REFRACTORY ANAEMIA WITH RINGED SIDEROBLASTS
     Dosage: 1250 MG, DAILY
  5. NEULASTA [Concomitant]
     Dosage: 6 MG, QD
  6. LEXAPRO [Concomitant]
  7. AVELOX [Concomitant]
  8. FLAGYL [Concomitant]
  9. MULTI-VITAMIN [Concomitant]
  10. FOLIC ACID [Concomitant]

REACTIONS (6)
  - CELLULITIS [None]
  - PERIRECTAL ABSCESS [None]
  - PLATELET COUNT DECREASED [None]
  - FATIGUE [None]
  - INFLAMMATION [None]
  - ANAL ULCER [None]
